FAERS Safety Report 9288087 (Version 3)
Quarter: 2013Q3

REPORT INFORMATION
  Report Type: Report from Study
  Country: FR (occurrence: FR)
  Receive Date: 20130514
  Receipt Date: 20130712
  Transmission Date: 20140515
  Serious: Yes (Other)
  Sender: FDA-Public Use
  Company Number: FR-BAYER-2013-058613

PATIENT
  Age: 62 Year
  Sex: Male

DRUGS (2)
  1. REGORAFENIB [Suspect]
     Indication: COLORECTAL CANCER METASTATIC
  2. PARACETAMOL [Concomitant]
     Dosage: 5 G, QD

REACTIONS (2)
  - Hepatitis [Unknown]
  - Hepatitis cholestatic [Unknown]
